FAERS Safety Report 9210248 (Version 1)
Quarter: 2013Q2

REPORT INFORMATION
  Report Type: Spontaneous
  Country: GB (occurrence: GB)
  Receive Date: 20130404
  Receipt Date: 20130404
  Transmission Date: 20140414
  Serious: Yes (Other)
  Sender: FDA-Public Use
  Company Number: GB-JNJFOC-20130318786

PATIENT
  Sex: Female

DRUGS (3)
  1. REMICADE [Suspect]
     Indication: CROHN^S DISEASE
     Dosage: 2ND INFUSION
     Route: 042
  2. HUMIRA [Concomitant]
     Route: 065
  3. AZATHIOPRINE [Concomitant]
     Route: 065

REACTIONS (1)
  - Hyperkeratosis lenticularis perstans [Recovered/Resolved]
